FAERS Safety Report 14847605 (Version 1)
Quarter: 2018Q2

REPORT INFORMATION
  Report Type: Spontaneous
  Country: BR (occurrence: BR)
  Receive Date: 20180504
  Receipt Date: 20180504
  Transmission Date: 20180711
  Serious: Yes (Hospitalization, Other)
  Sender: FDA-Public Use
  Company Number: BR-JNJFOC-20180502681

PATIENT
  Age: 73 Year
  Sex: Male

DRUGS (1)
  1. XARELTO [Suspect]
     Active Substance: RIVAROXABAN
     Indication: THROMBOSIS
     Route: 048
     Dates: start: 2016

REACTIONS (7)
  - Cardiac valve disease [Unknown]
  - Mobility decreased [Unknown]
  - Peripheral coldness [Unknown]
  - Dyspnoea [Unknown]
  - Thrombosis [Unknown]
  - Hepatic atrophy [Unknown]
  - Leg amputation [Unknown]

NARRATIVE: CASE EVENT DATE: 201712
